FAERS Safety Report 12819482 (Version 1)
Quarter: 2016Q4

REPORT INFORMATION
  Report Type: Report from Study
  Country: US (occurrence: US)
  Receive Date: 20161006
  Receipt Date: 20161006
  Transmission Date: 20170207
  Serious: No
  Sender: FDA-Public Use
  Company Number: US-AMGEN-USASL2016000386

PATIENT
  Age: 62 Year
  Sex: Female

DRUGS (3)
  1. CALCIUM [Concomitant]
     Active Substance: CALCIUM
     Dosage: UNK
  2. VITAMIN D                          /00107901/ [Concomitant]
     Active Substance: ERGOCALCIFEROL
     Dosage: UNK
  3. PROLIA [Suspect]
     Active Substance: DENOSUMAB
     Indication: OSTEOPOROSIS POSTMENOPAUSAL
     Dosage: UNK
     Route: 065
     Dates: start: 2013

REACTIONS (7)
  - Gait disturbance [Unknown]
  - Bone density decreased [Not Recovered/Not Resolved]
  - Dysstasia [Unknown]
  - Therapy non-responder [Not Recovered/Not Resolved]
  - Coccydynia [Recovered/Resolved]
  - Back pain [Recovered/Resolved]
  - Alopecia [Unknown]
